FAERS Safety Report 19105600 (Version 2)
Quarter: 2021Q2

REPORT INFORMATION
  Report Type: Spontaneous
  Country: PL (occurrence: PL)
  Receive Date: 20210408
  Receipt Date: 20210512
  Transmission Date: 20210717
  Serious: Yes (Congenital Anomaly)
  Sender: FDA-Public Use
  Company Number: PL-BIOGEN-2021BI00999301

PATIENT
  Age: 0 Year

DRUGS (1)
  1. TECFIDERA [Suspect]
     Active Substance: DIMETHYL FUMARATE
     Indication: MATERNAL EXPOSURE TIMING UNSPECIFIED
     Route: 064
     Dates: start: 20181003, end: 20200202

REACTIONS (8)
  - Oesophageal atresia [Unknown]
  - Atrial septal defect [Unknown]
  - Pneumothorax [Unknown]
  - Foetal exposure during pregnancy [Recovered/Resolved]
  - Accessory auricle [Unknown]
  - Tracheo-oesophageal fistula [Unknown]
  - Hemivertebra [Unknown]
  - Sepsis [Unknown]

NARRATIVE: CASE EVENT DATE: 20200202
